FAERS Safety Report 7346397-4 (Version None)
Quarter: 2011Q1

REPORT INFORMATION
  Report Type: 
  Country: None (occurrence: None)
  Receive Date: 20110311
  Receipt Date: 20110307
  Transmission Date: 20110831
  Serious: Yes (Death, Other)
  Sender: FDA-Public Use
  Company Number: US-AMGEN-USASP2011012957

PATIENT
  Age: 77 Year
  Sex: Female

DRUGS (3)
  1. NPLATE [Suspect]
     Indication: IDIOPATHIC THROMBOCYTOPENIC PURPURA
     Dosage: 4 A?G/KG, UNK
     Dates: start: 20090916, end: 20110210
  2. CORTICOSTEROIDS [Concomitant]
  3. IVIGLOB-EX [Concomitant]

REACTIONS (2)
  - CARDIAC DISORDER [None]
  - CARDIAC DEATH [None]
